FAERS Safety Report 21706966 (Version 4)
Quarter: 2023Q1

REPORT INFORMATION
  Report Type: Report from Study
  Country: GR (occurrence: GR)
  Receive Date: 20221209
  Receipt Date: 20230315
  Transmission Date: 20230418
  Serious: Yes (Hospitalization, Other)
  Sender: FDA-Public Use
  Company Number: GR-AKCEA THERAPEUTICS, INC.-2022IS001232

PATIENT
  Age: 54 Year
  Sex: Female
  Weight: 70 kg

DRUGS (15)
  1. MEDROL [Suspect]
     Active Substance: METHYLPREDNISOLONE
     Indication: Fatigue
     Dosage: 16 MG
     Route: 048
  2. MEDROL [Suspect]
     Active Substance: METHYLPREDNISOLONE
     Indication: Gait disturbance
  3. MEDROL [Suspect]
     Active Substance: METHYLPREDNISOLONE
     Indication: Pyrexia
  4. MEDROL [Suspect]
     Active Substance: METHYLPREDNISOLONE
     Indication: Rash
  5. VOLANESORSEN SODIUM [Suspect]
     Active Substance: VOLANESORSEN SODIUM
     Indication: Familial hypertriglyceridaemia
     Dosage: 285 MG, (285 MG EVERY 2 WEEKS)
     Route: 058
     Dates: start: 20200602, end: 20220314
  6. VOLANESORSEN SODIUM [Suspect]
     Active Substance: VOLANESORSEN SODIUM
     Dosage: ONCE MONTHLY
     Route: 058
  7. VOLANESORSEN SODIUM [Suspect]
     Active Substance: VOLANESORSEN SODIUM
     Dosage: 285 MG, (285 MG EVERY 2 WEEKS)
     Route: 058
  8. VOLANESORSEN SODIUM [Suspect]
     Active Substance: VOLANESORSEN SODIUM
     Dosage: ONCE MONTHLY
     Route: 058
  9. VOLANESORSEN SODIUM [Suspect]
     Active Substance: VOLANESORSEN SODIUM
     Dosage: 285 MG, (285 MG EVERY 2 WEEKS)
     Route: 058
  10. OMACOR [Concomitant]
     Active Substance: OMEGA-3-ACID ETHYL ESTERS
     Indication: Blood triglycerides increased
     Dosage: 1000 MG, 1X/DAY
     Route: 048
  11. LOSEC 1-2-3 M [Concomitant]
     Indication: Gastrooesophageal reflux prophylaxis
     Dosage: 20 MG, 1X/DAY
     Route: 048
     Dates: start: 2007
  12. PITAVASTATIN CALCIUM [Concomitant]
     Active Substance: PITAVASTATIN CALCIUM
     Indication: Blood cholesterol increased
     Dosage: 4 MG, 1X/DAY
     Route: 048
  13. ACETAMINOPHEN\CODEINE PHOSPHATE [Concomitant]
     Active Substance: ACETAMINOPHEN\CODEINE PHOSPHATE
     Indication: Hypertension
     Dosage: 5 MG, 1X/DAY
  14. LIPIDIL [Concomitant]
     Active Substance: FENOFIBRATE
     Indication: Lipids increased
     Dosage: 145 MG, 1X/DAY
  15. FAT EMULSION NOS [Concomitant]
     Active Substance: EGG PHOSPHOLIPIDS\SAFFLOWER OIL\SOYBEAN OIL
     Indication: Product used for unknown indication

REACTIONS (32)
  - Rash [Recovered/Resolved]
  - Fatigue [Recovered/Resolved]
  - Hypersensitivity [Recovered/Resolved]
  - Pyrexia [Recovered/Resolved]
  - Cataract [Not Recovered/Not Resolved]
  - Hypotension [Unknown]
  - Myalgia [Recovered/Resolved]
  - Malaise [Recovered/Resolved]
  - Myalgia [Recovered/Resolved]
  - Peripheral swelling [Recovered/Resolved]
  - Vomiting [Recovered/Resolved]
  - Pain [Recovered/Resolved]
  - Fatigue [Recovered/Resolved]
  - Pyrexia [Recovered/Resolved]
  - Abdominal pain [Recovered/Resolved]
  - Pyrexia [Recovered/Resolved]
  - Fatigue [Recovered/Resolved]
  - Abdominal pain [Recovered/Resolved]
  - Pain [Recovered/Resolved]
  - Hypertension [Recovered/Resolved]
  - Adnexa uteri pain [Recovered/Resolved]
  - Pain in extremity [Recovered/Resolved]
  - Gait disturbance [Recovered/Resolved]
  - Lipoma of breast [Recovered/Resolved]
  - Vision blurred [Not Recovered/Not Resolved]
  - Bone pain [Recovered/Resolved]
  - Gait disturbance [Unknown]
  - Pigmentation disorder [Not Recovered/Not Resolved]
  - Bone pain [Recovered/Resolved]
  - Neuralgia [Unknown]
  - Asthenia [Unknown]
  - Hypoaesthesia [Recovered/Resolved]

NARRATIVE: CASE EVENT DATE: 20210101
